FAERS Safety Report 14673103 (Version 3)
Quarter: 2018Q2

REPORT INFORMATION
  Report Type: Report from Study
  Country: None (occurrence: US)
  Receive Date: 20180323
  Receipt Date: 20180529
  Transmission Date: 20180711
  Serious: Yes (Hospitalization, Other)
  Sender: FDA-Public Use
  Company Number: US-ABBVIE-18K-163-2285511-00

PATIENT
  Age: 68 Year
  Sex: Male
  Weight: 85.81 kg

DRUGS (8)
  1. HUMIRA [Suspect]
     Active Substance: ADALIMUMAB
     Indication: CROHN^S DISEASE
     Route: 058
     Dates: start: 201611
  2. ASACOL [Concomitant]
     Active Substance: MESALAMINE
     Indication: COLITIS ULCERATIVE
  3. METOPROLOL. [Concomitant]
     Active Substance: METOPROLOL
     Indication: HYPERTENSION
  4. ASPIRIN. [Concomitant]
     Active Substance: ASPIRIN
     Indication: PRODUCT USED FOR UNKNOWN INDICATION
  5. VALSARTAN. [Concomitant]
     Active Substance: VALSARTAN
     Indication: HYPERTENSION
  6. ROWASA [Concomitant]
     Active Substance: MESALAMINE
     Indication: COLITIS ULCERATIVE
  7. TRAZODONE [Concomitant]
     Active Substance: TRAZODONE HYDROCHLORIDE
     Indication: SLEEP DISORDER
  8. OMEPRAZOLE. [Concomitant]
     Active Substance: OMEPRAZOLE
     Indication: GASTROOESOPHAGEAL REFLUX DISEASE

REACTIONS (16)
  - Rectal stenosis [Recovering/Resolving]
  - Volume blood decreased [Not Recovered/Not Resolved]
  - Intestinal stenosis [Recovered/Resolved]
  - Colitis [Recovered/Resolved]
  - Intestinal fistula [Unknown]
  - Coronary artery occlusion [Recovered/Resolved]
  - Pancytopenia [Unknown]
  - Influenza [Recovered/Resolved]
  - Gastrointestinal oedema [Recovered/Resolved]
  - Pseudopolyposis [Recovered/Resolved]
  - Haemoglobin decreased [Unknown]
  - Blood iron decreased [Not Recovered/Not Resolved]
  - Iron deficiency anaemia [Unknown]
  - Intestinal ulcer [Recovered/Resolved]
  - Haemorrhoids [Unknown]
  - Mesenteric vascular insufficiency [Unknown]

NARRATIVE: CASE EVENT DATE: 201611
